FAERS Safety Report 4276393-5 (Version None)
Quarter: 2004Q1

REPORT INFORMATION
  Report Type: 
  Country: None (occurrence: None)
  Receive Date: 20040121
  Receipt Date: 20030725
  Transmission Date: 20041129
  Serious: Yes (Hospitalization, Disabling)
  Sender: FDA-Public Use
  Company Number: DE-BRISTOL-MYERS SQUIBB COMPANY-12335899

PATIENT
  Age: 74 Year
  Sex: Female
  Weight: 54 kg

DRUGS (4)
  1. TAXOL [Suspect]
     Indication: OVARIAN CANCER
     Dosage: CYCLE 2: 04-AUG-2003, 287 MG
     Dates: start: 20030711, end: 20030711
  2. RIBOCARBO [Suspect]
     Indication: OVARIAN CANCER
     Dosage: DOSE = AUC 5  CYCLE 2: 04-AUG-2003, 524.6 MG
     Dates: start: 20030711, end: 20030711
  3. GEMZAR [Suspect]
     Indication: OVARIAN CANCER
     Dosage: CYCLE 2: 04-AUG-2003, 1312 MG
     Dates: start: 20030711, end: 20030718
  4. CAPTOHEXAL [Concomitant]
     Dosage: 1/2-0-0

REACTIONS (2)
  - CEREBROVASCULAR ACCIDENT [None]
  - FEBRILE NEUTROPENIA [None]
